FAERS Safety Report 9438239 (Version 2)
Quarter: 2014Q1

REPORT INFORMATION
  Report Type: Spontaneous
  Country: US (occurrence: US)
  Receive Date: 20130802
  Receipt Date: 20140110
  Transmission Date: 20141002
  Serious: Yes (Hospitalization)
  Sender: FDA-Public Use
  Company Number: US-B.I. PHARMACEUTICALS,INC./RIDGEFIELD-2013-BI-23045BP

PATIENT
  Age: 78 Year
  Sex: Male
  Weight: 68.04 kg

DRUGS (9)
  1. PRADAXA [Suspect]
     Indication: ATRIAL FIBRILLATION
     Dosage: 300 MG
     Dates: start: 20110505, end: 20110615
  2. SPIRIVA [Concomitant]
     Dosage: 18 MCG
  3. LIPITOR [Concomitant]
     Dosage: 20 MG
  4. TOPROL [Concomitant]
     Dosage: 25 MG
  5. NORVASC [Concomitant]
     Dosage: 5 MG
  6. ASPIRIN [Concomitant]
     Dosage: 81 MG
  7. TIKOSYN [Concomitant]
  8. TRAZODONE [Concomitant]
     Dosage: 50 MG
     Route: 048
  9. ADVAIR [Concomitant]

REACTIONS (2)
  - Gastrointestinal haemorrhage [Unknown]
  - Haemorrhagic anaemia [Unknown]
